FAERS Safety Report 13214383 (Version 1)
Quarter: 2017Q1

REPORT INFORMATION
  Report Type: Spontaneous
  Country: US (occurrence: US)
  Receive Date: 20170210
  Receipt Date: 20170210
  Transmission Date: 20170428
  Serious: No
  Sender: FDA-Public Use
  Company Number: US-LUNDBECK-DKLU2025142

PATIENT
  Age: 49 Year
  Sex: Male

DRUGS (1)
  1. ONFI [Suspect]
     Active Substance: CLOBAZAM
     Indication: EPILEPSY
     Route: 065
     Dates: start: 201612, end: 20170111

REACTIONS (6)
  - Lethargy [Unknown]
  - Somnolence [Unknown]
  - Memory impairment [Unknown]
  - Sluggishness [Unknown]
  - Aphasia [Unknown]
  - Fatigue [Unknown]

NARRATIVE: CASE EVENT DATE: 201612
